FAERS Safety Report 21948901 (Version 1)
Quarter: 2023Q1

REPORT INFORMATION
  Report Type: Spontaneous
  Country: AT (occurrence: AT)
  Receive Date: 20230203
  Receipt Date: 20230203
  Transmission Date: 20230417
  Serious: Yes (Death, Other)
  Sender: FDA-Public Use
  Company Number: AT-GILEAD-2023-0615065

PATIENT
  Sex: Male

DRUGS (6)
  1. AMPHOTERICIN B [Suspect]
     Active Substance: AMPHOTERICIN B
     Indication: Mucormycosis
     Dosage: UNK UNK, UNKNOWN FREQ.
     Route: 065
     Dates: start: 202109
  2. VEKLURY [Suspect]
     Active Substance: REMDESIVIR
     Indication: COVID-19 pneumonia
     Dosage: UNK UNK, UNKNOWN FREQ.
     Route: 065
     Dates: start: 202108
  3. ISAVUCONAZOLE [Concomitant]
     Active Substance: ISAVUCONAZOLE
     Indication: Mucormycosis
     Dosage: UNK UNK, UNKNOWN FREQ.
     Route: 065
  4. METHYLPREDNISOLONE [Concomitant]
     Active Substance: METHYLPREDNISOLONE
     Indication: COVID-19 pneumonia
     Dosage: UNK UNK, UNKNOWN FREQ.
     Route: 065
     Dates: start: 202108
  5. COVID-19 CONVALESCENT PLASMA [Concomitant]
     Active Substance: COVID-19 CONVALESCENT PLASMA
     Indication: COVID-19 pneumonia
     Dosage: UNK UNK, UNKNOWN FREQ.
     Route: 065
     Dates: start: 202108
  6. OXYGEN [Concomitant]
     Active Substance: OXYGEN
     Indication: COVID-19 pneumonia
     Dosage: UNK UNK, UNKNOWN FREQ.
     Route: 065
     Dates: start: 202108

REACTIONS (3)
  - Death [Fatal]
  - Acute kidney injury [Unknown]
  - Mucormycosis [Unknown]

NARRATIVE: CASE EVENT DATE: 20210801
